FAERS Safety Report 17377519 (Version 1)
Quarter: 2020Q1

REPORT INFORMATION
  Report Type: Other
  Country: AU (occurrence: AU)
  Receive Date: 20200206
  Receipt Date: 20200206
  Transmission Date: 20200409
  Serious: Yes (Life-Threatening, Hospitalization)
  Sender: FDA-Public Use
  Company Number: AU-NOSTRUM LABORATORIES, INC.-2079895

PATIENT
  Age: 29 Year
  Sex: Female
  Weight: 50 kg

DRUGS (1)
  1. CARBAMAZEPINE EXTENDED-RELEASE CAPSULES, 100 MG, 200 MG, + 300 MG [Suspect]
     Active Substance: CARBAMAZEPINE
     Indication: INTENTIONAL OVERDOSE
     Route: 048

REACTIONS (6)
  - Explorative laparotomy [Recovered/Resolved with Sequelae]
  - Intentional overdose [Recovered/Resolved with Sequelae]
  - Small intestinal obstruction [Recovered/Resolved with Sequelae]
  - Hypotension [Recovered/Resolved]
  - Coma [Recovered/Resolved]
  - Ileostomy [Unknown]
